FAERS Safety Report 7026359-7 (Version None)
Quarter: 2010Q4

REPORT INFORMATION
  Report Type: 
  Country: None (occurrence: None)
  Receive Date: 20101004
  Receipt Date: 20100928
  Transmission Date: 20110411
  Serious: Yes (Hospitalization)
  Sender: FDA-Public Use
  Company Number: US-ELI_LILLY_AND_COMPANY-US201009007654

PATIENT
  Sex: Female

DRUGS (1)
  1. HUMULIN R [Suspect]
     Indication: DIABETES MELLITUS
     Dosage: 4 U, 2/D

REACTIONS (3)
  - DRUG EXPOSURE DURING PREGNANCY [None]
  - EXPIRED DRUG ADMINISTERED [None]
  - VOMITING [None]
